FAERS Safety Report 20821035 (Version 1)
Quarter: 2022Q2

REPORT INFORMATION
  Report Type: Spontaneous
  Country: US (occurrence: US)
  Receive Date: 20220512
  Receipt Date: 20220512
  Transmission Date: 20220721
  Serious: Yes (Other)
  Sender: FDA-Public Use
  Company Number: US-GW PHARMA-2022-US-014677

PATIENT
  Sex: Male
  Weight: 54.422 kg

DRUGS (1)
  1. EPIDIOLEX [Suspect]
     Active Substance: CANNABIDIOL
     Indication: Idiopathic generalised epilepsy
     Dosage: 5 MILLILITER
     Route: 048
     Dates: start: 202010

REACTIONS (3)
  - Pneumonia aspiration [Unknown]
  - Weight decreased [Unknown]
  - Off label use [Unknown]
